FAERS Safety Report 25083202 (Version 1)
Quarter: 2025Q1

REPORT INFORMATION
  Report Type: Spontaneous
  Country: JP (occurrence: JP)
  Receive Date: 20250317
  Receipt Date: 20250317
  Transmission Date: 20250409
  Serious: No
  Sender: MERCK SHARP & DOHME LLC
  Company Number: JP-009507513-2264715

PATIENT
  Age: 77 Year
  Sex: Male

DRUGS (1)
  1. LAGEVRIO [Suspect]
     Active Substance: MOLNUPIRAVIR
     Indication: COVID-19
     Route: 048

REACTIONS (2)
  - SARS-CoV-2 test positive [Unknown]
  - Inappropriate schedule of product administration [Unknown]
